FAERS Safety Report 21590960 (Version 1)
Quarter: 2022Q4

REPORT INFORMATION
  Report Type: Spontaneous
  Country: US (occurrence: None)
  Receive Date: 20221111
  Receipt Date: 20221111
  Transmission Date: 20230113
  Serious: Yes (Other)
  Sender: FDA-Public Use
  Company Number: None

PATIENT
  Age: 67 Year
  Sex: Female
  Weight: 90.72 kg

DRUGS (2)
  1. ESOMEPRAZOLE [Suspect]
     Active Substance: ESOMEPRAZOLE
     Indication: Barrett^s oesophagus
     Dosage: FREQUENCY : TWICE A DAY;?
     Route: 048
     Dates: start: 20180315
  2. ESOMEPRAZOLE [Suspect]
     Active Substance: ESOMEPRAZOLE
     Indication: Barrett^s oesophagus
     Dosage: FREQUENCY : TWICE A DAY;?
     Route: 048
     Dates: start: 20220114, end: 20220915

REACTIONS (5)
  - Anxiety [None]
  - Depression [None]
  - Pollakiuria [None]
  - Micturition urgency [None]
  - Product substitution issue [None]

NARRATIVE: CASE EVENT DATE: 20220913
